FAERS Safety Report 6326952-0 (Version None)
Quarter: 2009Q3

REPORT INFORMATION
  Report Type: 
  Country: None (occurrence: None)
  Receive Date: 20090825
  Receipt Date: 20090812
  Transmission Date: 20100115
  Serious: Yes (Hospitalization, Other)
  Sender: FDA-Public Use
  Company Number: PHHY2009BR34125

PATIENT
  Age: 30 Year
  Sex: Female
  Weight: 75 kg

DRUGS (3)
  1. RITALIN LA [Suspect]
     Indication: DEPRESSION
     Dosage: 30 MG/1 CAPSULE IN THE MORNING
     Route: 048
     Dates: start: 20070101
  2. RITALIN LA [Suspect]
     Dosage: 1 CAPSULE AT MORNING 6:30 AM, 1 CAPSULE AT EVENNINGAT 16:00
  3. BUPROPION HYDROCHLORIDE [Concomitant]
     Indication: DEPRESSION
     Dosage: 1 TABLET IN THE MORNING

REACTIONS (11)
  - ABDOMINAL PAIN [None]
  - ANXIETY [None]
  - CHEST DISCOMFORT [None]
  - DRUG HYPERSENSITIVITY [None]
  - HEART RATE INCREASED [None]
  - LARYNGEAL OEDEMA [None]
  - PANIC ATTACK [None]
  - PSYCHOMOTOR HYPERACTIVITY [None]
  - SCIATICA [None]
  - TACHYCARDIA [None]
  - THROAT TIGHTNESS [None]
